FAERS Safety Report 4560779-5 (Version None)
Quarter: 2005Q1

REPORT INFORMATION
  Report Type: 
  Country: None (occurrence: None)
  Receive Date: 20050121
  Receipt Date: 20050105
  Transmission Date: 20050727
  Serious: Yes (Death)
  Sender: FDA-Public Use
  Company Number: T04-SWI-06971-01

PATIENT
  Age: 48 Year
  Sex: Female

DRUGS (6)
  1. CIPRALEX (ESCITALOPRAM) [Suspect]
     Indication: GENERALISED ANXIETY DISORDER
     Dosage: 10 MG QD PO
     Route: 048
     Dates: start: 20040624, end: 20040718
  2. CIPRALEX (ESCITALOPRAM) [Suspect]
     Indication: GENERALISED ANXIETY DISORDER
     Dosage: 15 MG QD PO
     Route: 048
     Dates: start: 20040719, end: 20040721
  3. CIPRALEX (ESCITALOPRAM) [Suspect]
     Indication: GENERALISED ANXIETY DISORDER
     Dosage: 20 MG QD PO
     Route: 048
     Dates: start: 20040722, end: 20040822
  4. TRUXAL (CHLORPROTHIXENE HYDROCHLORIDE) [Suspect]
     Indication: GENERALISED ANXIETY DISORDER
     Dosage: 60 MG QD PO
     Route: 048
     Dates: start: 20020812, end: 20040822
  5. LORAZEPAM [Suspect]
     Indication: GENERALISED ANXIETY DISORDER
     Dosage: 1 MG QD PO
     Route: 048
     Dates: start: 20040721, end: 20040816
  6. LORAZEPAM [Suspect]
     Indication: GENERALISED ANXIETY DISORDER
     Dosage: 0.5 MG QD PO
     Route: 048
     Dates: start: 20040816, end: 20040822

REACTIONS (2)
  - AGITATION [None]
  - COMPLETED SUICIDE [None]
